FAERS Safety Report 6190983-4 (Version None)
Quarter: 2009Q2

REPORT INFORMATION
  Report Type: 
  Country: None (occurrence: None)
  Receive Date: 20090513
  Receipt Date: 20090430
  Transmission Date: 20091009
  Serious: Yes (Death)
  Sender: FDA-Public Use
  Company Number: ADE# 09-192DPR

PATIENT
  Age: 93 Year
  Sex: Female

DRUGS (1)
  1. DIGOXIN [Suspect]
     Indication: CARDIAC FAILURE CONGESTIVE

REACTIONS (3)
  - CARDIAC FAILURE ACUTE [None]
  - RENAL FAILURE ACUTE [None]
  - SLUGGISHNESS [None]
